FAERS Safety Report 10147254 (Version 1)
Quarter: 2014Q2

REPORT INFORMATION
  Report Type: Spontaneous
  Country: US (occurrence: US)
  Receive Date: 20140501
  Receipt Date: 20140501
  Transmission Date: 20141212
  Serious: No
  Sender: FDA-Public Use
  Company Number: US-SA-2013SA135220

PATIENT
  Age: 33 Year
  Sex: Female

DRUGS (4)
  1. HECTOROL [Suspect]
     Indication: HYPERPARATHYROIDISM SECONDARY
     Route: 065
     Dates: start: 20131217, end: 20131217
  2. HEPARIN [Concomitant]
     Indication: ANTICOAGULANT THERAPY
     Dosage: DOSE:2000 UNIT(S)
     Dates: start: 20130801
  3. EPOGEN [Concomitant]
     Indication: ANAEMIA
     Dosage: DOSE: 4000 UNITS DOSE:4600 UNIT(S)
     Dates: start: 20130918
  4. MULTIVITAMIN AND MINERAL SUPPLEMENT [Concomitant]
     Indication: BLOOD ALBUMIN
     Dates: start: 20130801

REACTIONS (3)
  - Hypersensitivity [Recovered/Resolved]
  - Vomiting [Recovered/Resolved]
  - Headache [Recovered/Resolved]
